FAERS Safety Report 18080493 (Version 2)
Quarter: 2020Q4

REPORT INFORMATION
  Report Type: Spontaneous
  Country: SE (occurrence: SE)
  Receive Date: 20200728
  Receipt Date: 20201023
  Transmission Date: 20210113
  Serious: Yes (Other)
  Sender: FDA-Public Use
  Company Number: SE-MYLANLABS-2020M1067384

PATIENT
  Age: 64 Year
  Sex: Male

DRUGS (1)
  1. BUPREMYL [Suspect]
     Active Substance: BUPRENORPHINE
     Indication: BACK PAIN
     Dosage: UNK

REACTIONS (5)
  - Pruritus [Unknown]
  - Withdrawal syndrome [Unknown]
  - Back pain [Unknown]
  - Drug ineffective [Unknown]
  - Insomnia [Unknown]
